FAERS Safety Report 4674993-1 (Version None)
Quarter: 2005Q2

REPORT INFORMATION
  Report Type: 
  Country: None (occurrence: None)
  Receive Date: 20050525
  Receipt Date: 20050509
  Transmission Date: 20051028
  Serious: Yes (Other)
  Sender: FDA-Public Use
  Company Number: B0381580A

PATIENT
  Sex: 0

DRUGS (3)
  1. HYCAMTIN [Suspect]
     Indication: LEUKAEMIA
     Dosage: INTRAVENOUS INFUSION
     Route: 042
  2. CLADRIBINE INFUSION (CLADRIBINE) [Suspect]
     Indication: LEUKAEMIA
     Dosage: INTRAVENOUS INFUSION
     Route: 042
  3. FILGRASTIM [Concomitant]

REACTIONS (3)
  - DRUG TOXICITY [None]
  - MARROW HYPERPLASIA [None]
  - SEPSIS [None]
